FAERS Safety Report 7084732-5 (Version None)
Quarter: 2010Q4

REPORT INFORMATION
  Report Type: 
  Country: None (occurrence: None)
  Receive Date: 20101104
  Receipt Date: 20101028
  Transmission Date: 20110411
  Serious: Yes (Life-Threatening)
  Sender: FDA-Public Use
  Company Number: FR-MERCK-1010FRA00102

PATIENT
  Age: 52 Year
  Sex: Male

DRUGS (7)
  1. EMEND [Suspect]
     Route: 048
     Dates: start: 20100429, end: 20100429
  2. ONDANSETRON [Suspect]
     Route: 042
     Dates: start: 20100429, end: 20100429
  3. COSYNTROPIN [Suspect]
     Route: 042
     Dates: start: 20100429, end: 20100429
  4. CISPLATIN [Suspect]
     Indication: LUNG CARCINOMA CELL TYPE UNSPECIFIED STAGE 0
     Route: 042
     Dates: start: 20100429, end: 20100429
  5. BEVACIZUMAB [Suspect]
     Indication: LUNG CARCINOMA CELL TYPE UNSPECIFIED STAGE 0
     Route: 042
     Dates: start: 20100429, end: 20100429
  6. FUROSEMIDE [Concomitant]
     Route: 065
     Dates: start: 20100429, end: 20100429
  7. DEXAMETHASONE [Concomitant]
     Route: 042
     Dates: start: 20100429, end: 20100429

REACTIONS (1)
  - ANAPHYLACTIC SHOCK [None]
